FAERS Safety Report 25878094 (Version 1)
Quarter: 2025Q4

REPORT INFORMATION
  Report Type: Spontaneous
  Country: US (occurrence: US)
  Receive Date: 20251003
  Receipt Date: 20251003
  Transmission Date: 20260118
  Serious: No
  Sender: ELI LILLY AND COMPANY
  Company Number: US-ELI_LILLY_AND_COMPANY-US202509006796

PATIENT
  Age: 65 Year
  Sex: Female

DRUGS (19)
  1. MOUNJARO [Suspect]
     Active Substance: TIRZEPATIDE
     Indication: Glucose tolerance impaired
     Dosage: UNK, UNKNOWN
     Route: 065
     Dates: start: 202312
  2. MOUNJARO [Suspect]
     Active Substance: TIRZEPATIDE
     Indication: Glucose tolerance impaired
     Dosage: 10 MG, WEEKLY (1/W)
     Route: 065
     Dates: start: 2025
  3. MOUNJARO [Suspect]
     Active Substance: TIRZEPATIDE
     Indication: Glucose tolerance impaired
     Dosage: 10 MG, WEEKLY (1/W)
     Route: 065
     Dates: start: 2025
  4. MOUNJARO [Suspect]
     Active Substance: TIRZEPATIDE
     Indication: Glucose tolerance impaired
     Dosage: 10 MG, WEEKLY (1/W)
     Route: 065
     Dates: start: 2025
  5. MOUNJARO [Suspect]
     Active Substance: TIRZEPATIDE
     Indication: Glucose tolerance impaired
     Dosage: 10 MG, WEEKLY (1/W)
     Route: 065
     Dates: start: 2025
  6. LEVOTHYROXINE SODIUM [Concomitant]
     Active Substance: LEVOTHYROXINE SODIUM
     Indication: Hypothyroidism
     Dosage: UNK UNK, UNKNOWN
     Route: 065
     Dates: start: 198501
  7. TRAZODONE [Concomitant]
     Active Substance: TRAZODONE HYDROCHLORIDE
     Indication: Insomnia
     Dosage: UNK UNK, UNKNOWN
     Route: 065
     Dates: start: 201001
  8. ROSUVASTATIN CALCIUM [Concomitant]
     Active Substance: ROSUVASTATIN CALCIUM
     Indication: Blood cholesterol increased
     Dosage: UNK UNK, UNKNOWN
     Route: 065
     Dates: start: 201601
  9. MELATONIN [Concomitant]
     Active Substance: MELATONIN
     Indication: Insomnia
     Dosage: UNK, UNKNOWN
     Route: 065
     Dates: start: 200501
  10. LISINOPRIL [Concomitant]
     Active Substance: LISINOPRIL
     Indication: Blood pressure increased
     Dosage: UNK UNK, UNKNOWN
     Route: 065
     Dates: start: 201001
  11. GABAPENTIN [Concomitant]
     Active Substance: GABAPENTIN
     Indication: Pain in extremity
     Dosage: UNK, UNKNOWN
     Route: 065
     Dates: start: 202001
  12. IBUPROFEN [Concomitant]
     Active Substance: IBUPROFEN
     Indication: Pain
     Dosage: UNK, UNKNOWN
     Route: 065
     Dates: start: 200501
  13. ARTHRITIS PAIN ACETAMINOPHEN [Concomitant]
     Active Substance: ACETAMINOPHEN
     Indication: Pain
     Dosage: UNK, UNKNOWN
     Route: 065
     Dates: start: 200501
  14. BUPROPION [Concomitant]
     Active Substance: BUPROPION
     Indication: Anxiety
     Dosage: UNK, UNKNOWN
     Route: 065
     Dates: start: 199901
  15. FLUTICASONE PROPIONATE [Concomitant]
     Active Substance: FLUTICASONE PROPIONATE
     Indication: Multiple allergies
     Dosage: UNK, UNKNOWN
     Route: 065
     Dates: start: 202001
  16. ALGINIC ACID\ALUMINUM HYDROXIDE [Concomitant]
     Active Substance: ALGINIC ACID\ALUMINUM HYDROXIDE
     Indication: Nausea
     Dosage: UNK, UNKNOWN
     Route: 065
     Dates: start: 202301
  17. KETOCONAZOLE [Concomitant]
     Active Substance: KETOCONAZOLE
     Indication: Eczema
     Dosage: UNK, UNKNOWN
     Route: 065
     Dates: start: 201501
  18. PSEUDOEPHEDRINE [Concomitant]
     Active Substance: PSEUDOEPHEDRINE
     Indication: Multiple allergies
     Dosage: UNK, UNKNOWN
     Route: 065
     Dates: start: 202301
  19. VITAMIN D NOS [Concomitant]
     Active Substance: CHOLECALCIFEROL\ERGOCALCIFEROL
     Indication: Product used for unknown indication
     Dosage: UNK, UNKNOWN
     Route: 065
     Dates: start: 200001

REACTIONS (5)
  - Injection site pain [Unknown]
  - Product administered at inappropriate site [Unknown]
  - Incorrect dose administered [Unknown]
  - Incorrect dose administered [Unknown]
  - Off label use [Unknown]

NARRATIVE: CASE EVENT DATE: 20231201
